FAERS Safety Report 5534388-5 (Version None)
Quarter: 2007Q4

REPORT INFORMATION
  Report Type: 
  Country: None (occurrence: None)
  Receive Date: 20071205
  Receipt Date: 20071129
  Transmission Date: 20080405
  Serious: Yes (Hospitalization, Other)
  Sender: FDA-Public Use
  Company Number: AU-AVENTIS-200721053GDDC

PATIENT
  Age: 67 Year
  Sex: Male

DRUGS (10)
  1. LANTUS [Suspect]
     Route: 058
     Dates: start: 20070905
  2. KEFLEX [Concomitant]
  3. LASIX [Concomitant]
  4. MINIPRESS [Concomitant]
  5. NORVASC                            /00972401/ [Concomitant]
  6. SODIBIC [Concomitant]
  7. CALTRATE                           /00108001/ [Concomitant]
  8. DITROPAN [Concomitant]
  9. RESONIUM [Concomitant]
  10. AVAPRO [Concomitant]

REACTIONS (1)
  - PERITONITIS [None]
